FAERS Safety Report 7880144-2 (Version None)
Quarter: 2011Q4

REPORT INFORMATION
  Report Type: 
  Country: None (occurrence: None)
  Receive Date: 20111101
  Receipt Date: 20111024
  Transmission Date: 20120403
  Serious: Yes (Death, Other)
  Sender: FDA-Public Use
  Company Number: US-BAYER-200940572NA

PATIENT
  Age: 76 Year
  Sex: Male
  Weight: 82 kg

DRUGS (5)
  1. NORVASC [Concomitant]
     Indication: PRODUCT USED FOR UNKNOWN INDICATION
  2. TRASYLOL [Suspect]
     Indication: CORONARY ARTERY BYPASS
     Dosage: 200 ML X 2, UNK
     Route: 042
     Dates: start: 20050121
  3. SYNTHROID [Concomitant]
     Indication: PRODUCT USED FOR UNKNOWN INDICATION
  4. TRASYLOL [Suspect]
     Indication: MITRAL VALVE REPAIR
  5. SPIRONOLACTONE [Concomitant]
     Indication: PRODUCT USED FOR UNKNOWN INDICATION
     Dosage: UNK

REACTIONS (14)
  - ANXIETY [None]
  - FEAR [None]
  - RENAL FAILURE [None]
  - DEATH [None]
  - EMOTIONAL DISTRESS [None]
  - PAIN [None]
  - MULTI-ORGAN FAILURE [None]
  - MENTAL DISORDER [None]
  - UNEVALUABLE EVENT [None]
  - ANHEDONIA [None]
  - RENAL IMPAIRMENT [None]
  - STRESS [None]
  - RENAL INJURY [None]
  - INJURY [None]
